FAERS Safety Report 18247642 (Version 2)
Quarter: 2020Q3

REPORT INFORMATION
  Report Type: Spontaneous
  Country: US (occurrence: US)
  Receive Date: 20200909
  Receipt Date: 20200929
  Transmission Date: 20201103
  Serious: Yes (Other)
  Sender: FDA-Public Use
  Company Number: US-009507513-2009USA001171

PATIENT
  Age: 69 Year
  Sex: Male

DRUGS (3)
  1. KEYTRUDA [Suspect]
     Active Substance: PEMBROLIZUMAB
     Indication: HEPATIC CANCER METASTATIC
     Dosage: 200 MILLIGRAM, UNK
  2. IPILIMUMAB [Suspect]
     Active Substance: IPILIMUMAB
     Indication: HEPATIC CANCER METASTATIC
     Dosage: 3 MILLIGRAM/KILOGRAM, UNK
  3. NIVOLUMAB [Suspect]
     Active Substance: NIVOLUMAB
     Indication: HEPATIC CANCER METASTATIC
     Dosage: 1 MILLIGRAM/KILOGRAM, UNK

REACTIONS (2)
  - Colitis [Unknown]
  - Large intestine perforation [Unknown]
